FAERS Safety Report 8702663 (Version 2)
Quarter: 2012Q4

REPORT INFORMATION
  Report Type: Report from Study
  Country: FR (occurrence: FR)
  Receive Date: 20120803
  Receipt Date: 20121009
  Transmission Date: 20130627
  Serious: Yes (Disabling)
  Sender: FDA-Public Use
  Company Number: FR-CELGENEUS-056-21880-12072517

PATIENT
  Age: 54 Year
  Sex: Male

DRUGS (9)
  1. REVLIMID [Suspect]
     Indication: MULTIPLE MYELOMA
     Route: 048
     Dates: start: 20110110
  2. REVLIMID [Suspect]
     Route: 048
     Dates: end: 20120716
  3. BORTEZOMIB [Suspect]
     Indication: MULTIPLE MYELOMA
     Route: 065
     Dates: start: 20110110
  4. BORTEZOMIB [Suspect]
     Route: 065
     Dates: end: 20110715
  5. DEXAMETHASONE [Suspect]
     Indication: MULTIPLE MYELOMA
     Route: 065
     Dates: start: 20110110
  6. DEXAMETHASONE [Suspect]
     Route: 065
     Dates: end: 20110716
  7. ZELITREX [Concomitant]
     Indication: INFECTION PROPHYLAXIS
     Route: 048
     Dates: start: 20110110, end: 20120718
  8. ASPEGIC [Concomitant]
     Indication: THROMBOSIS PROPHYLAXIS
     Route: 048
     Dates: start: 20120718, end: 20120718
  9. IBUPROFENE [Concomitant]
     Indication: HEADACHE
     Route: 048

REACTIONS (1)
  - Hepatitis acute [Recovered/Resolved]
